FAERS Safety Report 22736713 (Version 3)
Quarter: 2024Q1

REPORT INFORMATION
  Report Type: Report from Study
  Country: DO (occurrence: DO)
  Receive Date: 20230721
  Receipt Date: 20240312
  Transmission Date: 20240410
  Serious: No
  Sender: FDA-Public Use
  Company Number: DO-002147023-NVSC2023DO160088

PATIENT
  Sex: Female

DRUGS (2)
  1. KESIMPTA [Suspect]
     Active Substance: OFATUMUMAB
     Indication: Multiple sclerosis
     Dosage: 20/0.4 MG/ML, QMO
     Route: 058
     Dates: start: 20221221, end: 20230717
  2. KESIMPTA [Suspect]
     Active Substance: OFATUMUMAB
     Dosage: 20 MG, QMO
     Route: 058
     Dates: start: 202301

REACTIONS (10)
  - Inflammation [Recovering/Resolving]
  - Muscle spasms [Recovering/Resolving]
  - Memory impairment [Unknown]
  - Pain [Recovering/Resolving]
  - Fatigue [Recovering/Resolving]
  - Hypophagia [Unknown]
  - Peripheral swelling [Unknown]
  - Swelling face [Unknown]
  - Pain in extremity [Unknown]
  - Ill-defined disorder [Unknown]

NARRATIVE: CASE EVENT DATE: 20230101
